FAERS Safety Report 9925715 (Version 1)
Quarter: 2014Q1

REPORT INFORMATION
  Report Type: Spontaneous
  Country: IN (occurrence: IN)
  Receive Date: 20140226
  Receipt Date: 20140226
  Transmission Date: 20141002
  Serious: Yes (Hospitalization)
  Sender: FDA-Public Use
  Company Number: IN-VIIV HEALTHCARE LIMITED-B0972269A

PATIENT
  Age: 41 Year
  Sex: Male

DRUGS (9)
  1. LAMIVUDINE-HIV [Suspect]
     Indication: ACQUIRED IMMUNODEFICIENCY SYNDROME
     Route: 065
  2. ZIDOVUDINE [Suspect]
     Indication: ACQUIRED IMMUNODEFICIENCY SYNDROME
     Route: 065
     Dates: start: 200906
  3. NEVIRAPINE [Suspect]
     Indication: ACQUIRED IMMUNODEFICIENCY SYNDROME
     Route: 065
     Dates: start: 200906
  4. STAVUDINE [Suspect]
     Indication: ACQUIRED IMMUNODEFICIENCY SYNDROME
     Route: 065
  5. EFAVIRENZ [Suspect]
     Indication: ACQUIRED IMMUNODEFICIENCY SYNDROME
     Route: 065
  6. RIFAMPICIN [Concomitant]
  7. ISONIAZID [Concomitant]
  8. ETHAMBUTOL [Concomitant]
  9. PYRIZINAMIDE [Concomitant]

REACTIONS (12)
  - Immune reconstitution inflammatory syndrome [Recovered/Resolved]
  - Meningitis tuberculous [Recovered/Resolved]
  - Anaemia [Recovered/Resolved]
  - Headache [Unknown]
  - Abnormal behaviour [Unknown]
  - CSF protein increased [Unknown]
  - Brain abscess [Unknown]
  - Loss of consciousness [Unknown]
  - CSF lymphocyte count increased [Unknown]
  - Hemiparesis [Unknown]
  - Dysarthria [Unknown]
  - Tuberculosis [Unknown]
